FAERS Safety Report 5029135-X (Version None)
Quarter: 2006Q2

REPORT INFORMATION
  Report Type: 
  Country: None (occurrence: None)
  Receive Date: 20060613
  Receipt Date: 20060526
  Transmission Date: 20061013
  Serious: Yes (Hospitalization)
  Sender: FDA-Public Use
  Company Number: 226053

PATIENT
  Age: 71 Year
  Sex: Female
  Weight: 84 kg

DRUGS (11)
  1. AVASTIN [Suspect]
     Indication: COLON CANCER
     Dosage: SEE IMAGE
     Route: 042
     Dates: start: 20050914, end: 20060302
  2. OXALIPLATIN (OXALIPLATIN) [Suspect]
     Indication: COLON CANCER
     Dosage: 157 MG, Q2W, INTRAVENOUS
     Route: 042
     Dates: start: 20050914, end: 20060302
  3. LEUCOVORIN CALCIUM [Suspect]
     Indication: COLON CANCER
     Dosage: 370 MG, Q2W, INTRAVENOUS
     Route: 042
     Dates: start: 20050914, end: 20060302
  4. FLUOROURACIL [Suspect]
     Indication: COLON CANCER
     Dosage: SEE IMAGE
     Route: 042
     Dates: start: 20050914, end: 20060302
  5. FERROUS SULFATE TAB [Concomitant]
  6. ENALAPRIL MALEATE [Concomitant]
  7. SIMVASTATIN [Concomitant]
  8. INSULIN HUMAN NPH (NPH HUMAN INSULIN ISOPHANE SUSPENSION) [Concomitant]
  9. METFORMIN [Concomitant]
  10. LORAZEPAM [Concomitant]
  11. MAGNESIUM SULFATE [Concomitant]

REACTIONS (6)
  - ALANINE AMINOTRANSFERASE INCREASED [None]
  - ARTERIOSCLEROSIS [None]
  - BLOOD PH DECREASED [None]
  - DISEASE PROGRESSION [None]
  - INTESTINAL ANGINA [None]
  - WHITE BLOOD CELLS URINE POSITIVE [None]
